FAERS Safety Report 11274284 (Version 2)
Quarter: 2015Q3

REPORT INFORMATION
  Report Type: Spontaneous
  Country: US (occurrence: US)
  Receive Date: 20150715
  Receipt Date: 20150826
  Transmission Date: 20151125
  Serious: Yes (Hospitalization)
  Sender: FDA-Public Use
  Company Number: US-INCYTE CORPORATION-2015IN003281

PATIENT
  Age: 75 Year
  Sex: Female

DRUGS (18)
  1. LOSARTAN. [Concomitant]
     Active Substance: LOSARTAN
  2. JAKAFI [Suspect]
     Active Substance: RUXOLITINIB
     Indication: MYELOFIBROSIS
     Dosage: 20 MG, BID
     Route: 048
     Dates: start: 20130920, end: 201507
  3. HYDROCHLOROTHIAZIDE W/TRIAMTERENE [Concomitant]
     Active Substance: HYDROCHLOROTHIAZIDE\TRIAMTERENE
  4. METOPROLOL [Concomitant]
     Active Substance: METOPROLOL
  5. BACLOFEN. [Concomitant]
     Active Substance: BACLOFEN
  6. DICYCLOMINE                        /00068601/ [Concomitant]
     Active Substance: DICYCLOMINE HYDROCHLORIDE
  7. EXJADE [Concomitant]
     Active Substance: DEFERASIROX
  8. BENADRYL [Concomitant]
     Active Substance: DIPHENHYDRAMINE HYDROCHLORIDE
  9. MULTIVITAMIN                       /00097801/ [Concomitant]
     Active Substance: VITAMINS
  10. CENTRUM SILVER                     /07431401/ [Concomitant]
  11. LASIX [Concomitant]
     Active Substance: FUROSEMIDE
  12. PROCRIT [Concomitant]
     Active Substance: ERYTHROPOIETIN
  13. OMEPRAZOLE. [Concomitant]
     Active Substance: OMEPRAZOLE
  14. HYDROCODONE [Concomitant]
     Active Substance: HYDROCODONE
  15. SIMVASTATIN. [Concomitant]
     Active Substance: SIMVASTATIN
  16. NORCO [Concomitant]
     Active Substance: ACETAMINOPHEN\HYDROCODONE BITARTRATE
  17. NITROSTAT [Concomitant]
     Active Substance: NITROGLYCERIN
  18. MINOXIDIL. [Concomitant]
     Active Substance: MINOXIDIL

REACTIONS (5)
  - Choking [Unknown]
  - Abasia [Unknown]
  - Muscle spasms [Unknown]
  - Haemoglobin decreased [Unknown]
  - Dyskinesia [Unknown]

NARRATIVE: CASE EVENT DATE: 20150703
